FAERS Safety Report 4422314-1 (Version None)
Quarter: 2004Q3

REPORT INFORMATION
  Report Type: 
  Country: None (occurrence: None)
  Receive Date: 20040810
  Receipt Date: 20040809
  Transmission Date: 20050211
  Serious: Yes (Other)
  Sender: FDA-Public Use
  Company Number: US-GLAXOSMITHKLINE-A0521553A

PATIENT
  Age: 14 Year
  Sex: Male

DRUGS (4)
  1. LAMICTAL [Suspect]
     Indication: EPILEPSY
     Dosage: 250MG TWICE PER DAY
     Route: 048
  2. PAXIL [Concomitant]
  3. CONCERTA [Concomitant]
  4. PRILOSEC [Concomitant]

REACTIONS (4)
  - BLOOD FIBRINOGEN DECREASED [None]
  - COAGULOPATHY [None]
  - OPERATIVE HAEMORRHAGE [None]
  - SURGERY [None]
